FAERS Safety Report 9246039 (Version 3)
Quarter: 2013Q3

REPORT INFORMATION
  Report Type: Report from Study
  Country: US (occurrence: US)
  Receive Date: 20130422
  Receipt Date: 20130729
  Transmission Date: 20140515
  Serious: Yes (Hospitalization)
  Sender: FDA-Public Use
  Company Number: US-ACTELION-A-US2013-81929

PATIENT
  Age: 84 Year
  Sex: Male

DRUGS (2)
  1. TRACLEER [Suspect]
     Indication: PULMONARY ARTERIAL HYPERTENSION
     Dosage: 125 MG, BID
     Route: 048
     Dates: start: 2007
  2. COUMADIN [Concomitant]

REACTIONS (6)
  - Cardiac perforation [Recovered/Resolved]
  - Procedural complication [Recovered/Resolved]
  - Heart valve replacement [Unknown]
  - Catheterisation cardiac [Unknown]
  - Cardiac pacemaker replacement [Recovered/Resolved]
  - Fatigue [Not Recovered/Not Resolved]
